FAERS Safety Report 16084150 (Version 2)
Quarter: 2019Q2

REPORT INFORMATION
  Report Type: Spontaneous
  Country: US (occurrence: US)
  Receive Date: 20190318
  Receipt Date: 20190522
  Transmission Date: 20190711
  Serious: No
  Sender: FDA-Public Use
  Company Number: US-PFIZER INC-2019115650

PATIENT
  Age: 64 Year
  Sex: Female

DRUGS (2)
  1. IBRANCE [Suspect]
     Active Substance: PALBOCICLIB
     Indication: BREAST CANCER FEMALE
     Dosage: 125 MG, CYCLIC, (ONE DAILY FOR 21 DAYS ON, 7 DAYS OFF)
     Route: 048
     Dates: start: 20160301
  2. IBRANCE [Suspect]
     Active Substance: PALBOCICLIB
     Dosage: 125 MG, CYCLIC(FOR 21 DAYS ON, 7 DAYS OFF)
     Route: 048
     Dates: start: 20170328

REACTIONS (23)
  - Fatigue [Unknown]
  - Insomnia [Unknown]
  - Macule [Unknown]
  - Hot flush [Not Recovered/Not Resolved]
  - Epistaxis [Unknown]
  - Urine odour abnormal [Unknown]
  - Arthralgia [Unknown]
  - Photophobia [Unknown]
  - Oral pain [Unknown]
  - Dry eye [Unknown]
  - Oropharyngeal plaque [Unknown]
  - Dry skin [Unknown]
  - Depression [Unknown]
  - Visual impairment [Unknown]
  - Dry mouth [Unknown]
  - Hair texture abnormal [Unknown]
  - Constipation [Unknown]
  - Paraesthesia [Unknown]
  - Memory impairment [Unknown]
  - Dizziness [Unknown]
  - Headache [Unknown]
  - Vision blurred [Not Recovered/Not Resolved]
  - Nausea [Unknown]
